FAERS Safety Report 14284265 (Version 1)
Quarter: 2017Q4

REPORT INFORMATION
  Report Type: Spontaneous
  Country: US (occurrence: US)
  Receive Date: 20171214
  Receipt Date: 20171214
  Transmission Date: 20180321
  Serious: Yes (Disabling)
  Sender: FDA-Public Use
  Company Number: None

PATIENT
  Age: 77 Year
  Sex: Female
  Weight: 65.25 kg

DRUGS (8)
  1. MULTIVITAMIN [Concomitant]
     Active Substance: VITAMINS
  2. MAGNESUI [Concomitant]
  3. LEVOFLOXACIN 500 MG TABS ZYD [Suspect]
     Active Substance: LEVOFLOXACIN
     Indication: CYSTITIS
     Dosage: ?          QUANTITY:7 TABLET(S);?
     Route: 048
     Dates: start: 20171210, end: 20171213
  4. WETTING SOLUTION FOR DRY EYES [Concomitant]
  5. LEVOFLOXACIN 500 MG TABS ZYD [Suspect]
     Active Substance: LEVOFLOXACIN
     Indication: BLOOD URINE PRESENT
     Dosage: ?          QUANTITY:7 TABLET(S);?
     Route: 048
     Dates: start: 20171210, end: 20171213
  6. FLUEOXETINE [Concomitant]
  7. LEVOFLOXACIN 500 MG TABS ZYD [Suspect]
     Active Substance: LEVOFLOXACIN
     Indication: PAIN
     Dosage: ?          QUANTITY:7 TABLET(S);?
     Route: 048
     Dates: start: 20171210, end: 20171213
  8. ROPINIROLE. [Concomitant]
     Active Substance: ROPINIROLE

REACTIONS (10)
  - Lymph node pain [None]
  - Pain [None]
  - Nightmare [None]
  - Ear pain [None]
  - Neck pain [None]
  - Thinking abnormal [None]
  - Insomnia [None]
  - Middle insomnia [None]
  - Lymphadenopathy [None]
  - Chest pain [None]

NARRATIVE: CASE EVENT DATE: 20171211
